FAERS Safety Report 6127774-6 (Version None)
Quarter: 2009Q1

REPORT INFORMATION
  Report Type: 
  Country: None (occurrence: None)
  Receive Date: 20090320
  Receipt Date: 20090320
  Transmission Date: 20090719
  Serious: Yes (Hospitalization)
  Sender: FDA-Public Use
  Company Number: None

PATIENT
  Age: 52 Year
  Sex: Male

DRUGS (3)
  1. LEVETIRACETAM [Suspect]
     Indication: ALTERED STATE OF CONSCIOUSNESS
     Dosage: AS ABOVE LAST SEEN 3/10/09
  2. LEVETIRACETAM [Suspect]
     Indication: CONVULSION
     Dosage: AS ABOVE LAST SEEN 3/10/09
  3. LAMOTRIGINE [Suspect]

REACTIONS (2)
  - CONVULSION [None]
  - PRODUCT QUALITY ISSUE [None]
